FAERS Safety Report 10489155 (Version 4)
Quarter: 2015Q4

REPORT INFORMATION
  Report Type: Spontaneous
  Country: US (occurrence: None)
  Receive Date: 20140815
  Receipt Date: 20151208
  Transmission Date: 20160304
  Serious: Yes (Other)
  Sender: FDA-Public Use
  Company Number: ADR-2013-02081

PATIENT
  Age: 50 Year
  Sex: Male

DRUGS (2)
  1. HYDROMORPHONE 28 MG/ML [Suspect]
     Active Substance: HYDROMORPHONE
     Dosage: 22.099 MG/DAY
  2. BACLOFEN INTRATHECAL 16.6 MCG/ML [Suspect]
     Active Substance: BACLOFEN
     Indication: PAIN
     Dosage: 13.101 MCG/DAY

REACTIONS (17)
  - Nausea [None]
  - Hyperaesthesia [None]
  - Vomiting [None]
  - Libido disorder [None]
  - Device computer issue [None]
  - Chills [None]
  - Musculoskeletal discomfort [None]
  - Tachycardia [None]
  - Palpitations [None]
  - Paraesthesia [None]
  - Hypoaesthesia [None]
  - Balance disorder [None]
  - Hypotonia [None]
  - Adverse drug reaction [None]
  - Drug withdrawal syndrome [None]
  - Pain [None]
  - Hyperhidrosis [None]
